FAERS Safety Report 25299770 (Version 1)
Quarter: 2025Q2

REPORT INFORMATION
  Report Type: Spontaneous
  Country: US (occurrence: None)
  Receive Date: 20250510
  Receipt Date: 20250510
  Transmission Date: 20250717
  Serious: Yes (Other)
  Sender: FDA-CTU
  Company Number: None

PATIENT
  Age: 63 Year
  Sex: Female
  Weight: 83.25 kg

DRUGS (8)
  1. ALENDRONATE SODIUM [Suspect]
     Active Substance: ALENDRONATE SODIUM
     Indication: Osteoporosis
     Route: 048
  2. KEVZARA [Concomitant]
     Active Substance: SARILUMAB
  3. PREDNISONE [Concomitant]
     Active Substance: PREDNISONE
  4. LOSARTAN [Concomitant]
     Active Substance: LOSARTAN
  5. VITAMIN C [Concomitant]
     Active Substance: ASCORBIC ACID
  6. NAC [Concomitant]
  7. TYLENOL [Concomitant]
     Active Substance: ACETAMINOPHEN
  8. walnut extract [Concomitant]

REACTIONS (4)
  - Bone pain [None]
  - Cough [None]
  - Pain [None]
  - Insomnia [None]

NARRATIVE: CASE EVENT DATE: 20250501
